FAERS Safety Report 6755438-4 (Version None)
Quarter: 2010Q2

REPORT INFORMATION
  Report Type: 
  Country: None (occurrence: None)
  Receive Date: 20100604
  Receipt Date: 20100522
  Transmission Date: 20101027
  Serious: Yes (Other)
  Sender: FDA-Public Use
  Company Number: US-BAYER-201026297GPV

PATIENT
  Age: 50 Year
  Sex: Male

DRUGS (7)
  1. FLUDARABINE [Suspect]
     Indication: STEM CELL TRANSPLANT
     Dosage: THREE DOSES
     Route: 042
  2. BUSULFEX [Suspect]
     Indication: MYCOSIS FUNGOIDES
     Dosage: THREE DOSES
  3. ANTI-THYMOCYTE GLOBULIN NOS [Suspect]
     Indication: STEM CELL TRANSPLANT
  4. TACROLIMUS [Concomitant]
     Indication: PROPHYLAXIS AGAINST GRAFT VERSUS HOST DISEASE
     Dosage: ON DAYS 1, 3, 6 AND 11
  5. TACROLIMUS [Concomitant]
  6. MINI METHOTREXATE [Concomitant]
     Indication: PROPHYLAXIS AGAINST GRAFT VERSUS HOST DISEASE
  7. NEUPOGEN [Concomitant]

REACTIONS (10)
  - ACUTE GRAFT VERSUS HOST DISEASE [None]
  - BRONCHOPULMONARY ASPERGILLOSIS [None]
  - CEREBRAL TOXOPLASMOSIS [None]
  - CHRONIC GRAFT VERSUS HOST DISEASE [None]
  - EPSTEIN-BARR VIRUS INFECTION [None]
  - HERPES ZOSTER [None]
  - ORGANISING PNEUMONIA [None]
  - PNEUMONIA BACTERIAL [None]
  - RESPIRATORY SYNCYTIAL VIRUS INFECTION [None]
  - SQUAMOUS CELL CARCINOMA [None]
